FAERS Safety Report 18610357 (Version 2)
Quarter: 2020Q4

REPORT INFORMATION
  Report Type: Spontaneous
  Country: JP (occurrence: JP)
  Receive Date: 20201214
  Receipt Date: 20201222
  Transmission Date: 20210114
  Serious: Yes (Hospitalization, Other)
  Sender: FDA-Public Use
  Company Number: JP-GLAXOSMITHKLINE-JP2020JPN242549

PATIENT
  Age: 66 Year
  Sex: Female

DRUGS (7)
  1. ACICLOVIR [Suspect]
     Active Substance: ACYCLOVIR
     Dosage: 5 MG/KG, TID
     Route: 041
  2. ACICLOVIR [Suspect]
     Active Substance: ACYCLOVIR
     Dosage: 200 MG
     Route: 048
  3. ACICLOVIR [Suspect]
     Active Substance: ACYCLOVIR
     Indication: AUTOLOGOUS HAEMATOPOIETIC STEM CELL TRANSPLANT
     Dosage: 200 MG
     Route: 048
  4. VALACICLOVIR [Suspect]
     Active Substance: VALACYCLOVIR HYDROCHLORIDE
     Dosage: 3000 MG
     Route: 048
  5. VALACICLOVIR [Suspect]
     Active Substance: VALACYCLOVIR HYDROCHLORIDE
     Dosage: 1000 MG TO 2000 MG PER DAY
     Route: 048
  6. ACICLOVIR [Suspect]
     Active Substance: ACYCLOVIR
     Indication: VARICELLA VIRUS TEST POSITIVE
     Dosage: UNK
     Route: 041
  7. VALACICLOVIR [Suspect]
     Active Substance: VALACYCLOVIR HYDROCHLORIDE
     Indication: VARICELLA VIRUS TEST POSITIVE
     Dosage: 3000 MG
     Route: 048

REACTIONS (9)
  - Retinitis [Unknown]
  - Rhegmatogenous retinal detachment [Unknown]
  - Blood count abnormal [Unknown]
  - Prescribed underdose [Unknown]
  - Visual acuity reduced [Unknown]
  - Anterior chamber inflammation [Unknown]
  - Adverse reaction [Unknown]
  - Necrotising retinitis [Unknown]
  - Incorrect product administration duration [Unknown]
